FAERS Safety Report 7677032-3 (Version None)
Quarter: 2011Q3

REPORT INFORMATION
  Report Type: 
  Country: None (occurrence: None)
  Receive Date: 20110808
  Receipt Date: 20110725
  Transmission Date: 20111222
  Serious: Yes (Hospitalization)
  Sender: FDA-Public Use
  Company Number: 1000022562

PATIENT
  Sex: Female

DRUGS (10)
  1. NEBIVOLOL HCL [Suspect]
     Dosage: 5 MG (5 MG, 1 IN 1 D),ORAL
     Route: 048
     Dates: end: 20110506
  2. CORDARONE [Suspect]
     Dosage: 200 MG (200 MG, 1  IN 1 D),ORAL
     Route: 048
     Dates: end: 20110506
  3. SEROPLEX (ESCITALOPRAM OXALATE)(TABLETS)(ESCITALOPRAM OXALATE) [Concomitant]
  4. LASILIX (FUROSEMIDE)(FUROSEMIDE) [Concomitant]
  5. XANAX [Concomitant]
  6. ATACAND [Concomitant]
  7. MEMANTINE HYDROCHLORIDE [Suspect]
     Dosage: 20 MG (20 MG, 1 IN 1 D),ORAL
     Route: 048
     Dates: end: 20110506
  8. KARDEGIC (ACETYLSALICYLATE LYSINE) (ACETYLSALICYLATE LYSINE) [Concomitant]
  9. ATHYMIL (MIANSERIN HYDROCHLORIDE)(MI- ANSERIN HYDROCHLORIDE) [Concomitant]
  10. NICARDIPINE HYDROCHLORIDE [Suspect]
     Dosage: 100 MG (50 MG,2 IN 1 D),ORAL
     Route: 048
     Dates: end: 20110506

REACTIONS (5)
  - MALAISE [None]
  - CONFUSIONAL STATE [None]
  - HYPOTHYROIDISM [None]
  - HYPOTENSION [None]
  - BRADYCARDIA [None]
